FAERS Safety Report 19159662 (Version 1)
Quarter: 2021Q2

REPORT INFORMATION
  Report Type: Spontaneous
  Country: JP (occurrence: JP)
  Receive Date: 20210420
  Receipt Date: 20210420
  Transmission Date: 20210717
  Serious: Yes (Other)
  Sender: FDA-Public Use
  Company Number: JP-PFIZER INC-2021374279

PATIENT
  Age: 74 Year
  Sex: Female

DRUGS (2)
  1. AROMASIN [Suspect]
     Active Substance: EXEMESTANE
     Dosage: UNK
  2. LETROZOLE. [Suspect]
     Active Substance: LETROZOLE
     Dosage: UNK

REACTIONS (5)
  - Blood bilirubin abnormal [Unknown]
  - Hepatic cirrhosis [Unknown]
  - Thrombosis [Unknown]
  - Altered state of consciousness [Unknown]
  - Hepatic function abnormal [Unknown]
